FAERS Safety Report 8599660-3 (Version None)
Quarter: 2012Q3

REPORT INFORMATION
  Report Type: 
  Country: None (occurrence: None)
  Receive Date: 20120816
  Receipt Date: 20120807
  Transmission Date: 20120928
  Serious: No
  Sender: FDA-Public Use
  Company Number: US-ASTRAZENECA-2011SE71189

PATIENT
  Age: 52 Year
  Sex: Female

DRUGS (14)
  1. CALCIUM CITRATE WITH D [Concomitant]
     Dosage: 500
  2. MULTI-VITAMIN [Concomitant]
  3. ASCORBIC ACID [Concomitant]
     Dosage: 500
  4. CRESTOR [Suspect]
     Dosage: 20
     Route: 048
  5. NIFEDIPENE ER [Concomitant]
     Dosage: 30
  6. MAGNESIUM [Concomitant]
     Dosage: 400
  7. IRON [Concomitant]
     Dosage: 28
  8. NEXIUM [Suspect]
     Route: 048
  9. VITAMIN D [Concomitant]
     Dosage: 50,000 WEEKLY
  10. PLAVIX [Concomitant]
     Dosage: 150
  11. VITAMIN B-12 [Concomitant]
  12. LOVAZA [Concomitant]
  13. ISOSORBIDE [Concomitant]
     Dosage: 60
  14. COQ10 [Concomitant]
     Dosage: 200

REACTIONS (2)
  - PAIN IN EXTREMITY [None]
  - URTICARIA [None]
